FAERS Safety Report 16117734 (Version 2)
Quarter: 2019Q2

REPORT INFORMATION
  Report Type: Spontaneous
  Country: JP (occurrence: JP)
  Receive Date: 20190326
  Receipt Date: 20190409
  Transmission Date: 20190711
  Serious: No
  Sender: FDA-Public Use
  Company Number: JP-TEVA-2019-JP-001226J

PATIENT
  Age: 47 Year
  Sex: Female
  Weight: 49 kg

DRUGS (9)
  1. MECOBALAMIN [Concomitant]
     Active Substance: METHYLCOBALAMIN
     Dosage: 1500 MICROGRAM DAILY;
     Route: 065
     Dates: start: 20190223, end: 20190225
  2. METHYCOBAL [Concomitant]
     Active Substance: METHYLCOBALAMIN
     Dosage: 1500 MICROGRAM DAILY;
     Route: 048
     Dates: start: 20190223, end: 20190224
  3. RESPLEN [Suspect]
     Active Substance: EPRAZINONE
     Indication: UPPER RESPIRATORY TRACT INFLAMMATION
     Route: 048
     Dates: start: 20190221, end: 20190225
  4. L-CARBOCISTEINE [Concomitant]
     Active Substance: CARBOCYSTEINE
     Route: 065
     Dates: start: 20190221, end: 20190225
  5. BIOFERMIN R [Concomitant]
     Active Substance: DIETARY SUPPLEMENT\PROBIOTICS
     Dosage: 6 DOSAGE FORMS DAILY;
     Route: 048
     Dates: start: 20190223, end: 20190225
  6. ADETPHOS [Concomitant]
     Active Substance: ADENOSINE TRIPHOSPHATE
     Dosage: 3 GRAM DAILY;
     Route: 048
     Dates: start: 20190223, end: 20190225
  7. AZITHROMYCIN TABLET 250MG TEVA [Suspect]
     Active Substance: AZITHROMYCIN
     Indication: SINUSITIS
     Route: 048
     Dates: start: 20190223, end: 20190224
  8. BILANOA [Suspect]
     Active Substance: BILASTINE
     Indication: RHINITIS ALLERGIC
     Route: 048
     Dates: start: 20190221
  9. TAMOXIFEN [Concomitant]
     Active Substance: TAMOXIFEN
     Dosage: 20 MILLIGRAM DAILY;
     Route: 048
     Dates: start: 2016

REACTIONS (6)
  - Rash [Recovered/Resolved]
  - Insomnia [Recovered/Resolved]
  - Face oedema [Recovered/Resolved]
  - Malaise [Recovered/Resolved]
  - Pyrexia [Recovered/Resolved]
  - Pruritus [Recovered/Resolved]

NARRATIVE: CASE EVENT DATE: 20190223
